FAERS Safety Report 17095071 (Version 1)
Quarter: 2019Q4

REPORT INFORMATION
  Report Type: Spontaneous
  Country: US (occurrence: US)
  Receive Date: 20191101
  Receipt Date: 20191101
  Transmission Date: 20200122
  Serious: Yes (Hospitalization)
  Sender: FDA-Public Use
  Company Number: None

PATIENT
  Sex: Female
  Weight: 86.1 kg

DRUGS (2)
  1. DEXAMETHASONE. [Suspect]
     Active Substance: DEXAMETHASONE
     Dates: end: 20190928
  2. EVEROLIMUS (RAD-001) [Suspect]
     Active Substance: EVEROLIMUS
     Dates: end: 20191011

REACTIONS (22)
  - Gastrointestinal viral infection [None]
  - Nausea [None]
  - Malignant neoplasm progression [None]
  - Gastrointestinal wall thickening [None]
  - Vomiting [None]
  - Liver function test increased [None]
  - Asthenia [None]
  - Abdominal distension [None]
  - Cough [None]
  - Condition aggravated [None]
  - Food intolerance [None]
  - Muscular weakness [None]
  - Ascites [None]
  - Dehydration [None]
  - Pleural effusion [None]
  - Atelectasis [None]
  - Fatigue [None]
  - Enteritis [None]
  - Peritoneal fluid analysis abnormal [None]
  - Diarrhoea [None]
  - Ileus paralytic [None]
  - Metastases to liver [None]

NARRATIVE: CASE EVENT DATE: 20191017
